FAERS Safety Report 8207545-7 (Version None)
Quarter: 2012Q1

REPORT INFORMATION
  Report Type: 
  Country: None (occurrence: None)
  Receive Date: 20120314
  Receipt Date: 20120306
  Transmission Date: 20120608
  Serious: Yes (Other)
  Sender: FDA-Public Use
  Company Number: US-SANOFI-AVENTIS-2012SA015331

PATIENT
  Age: 73 Year
  Sex: Male

DRUGS (1)
  1. MULTAQ [Suspect]
     Indication: ATRIAL FIBRILLATION
     Route: 048
     Dates: start: 20100601

REACTIONS (5)
  - ATRIAL FIBRILLATION [None]
  - HYPOAESTHESIA [None]
  - NASOPHARYNGITIS [None]
  - INSOMNIA [None]
  - TREMOR [None]
